FAERS Safety Report 19924850 (Version 4)
Quarter: 2022Q2

REPORT INFORMATION
  Report Type: Report from Study
  Country: DE (occurrence: DE)
  Receive Date: 20211006
  Receipt Date: 20220613
  Transmission Date: 20220721
  Serious: Yes (Hospitalization, Disabling, Other)
  Sender: FDA-Public Use
  Company Number: DE-SHIRE-DE202025848

PATIENT
  Age: 60 Year
  Sex: Female
  Weight: 63 kg

DRUGS (20)
  1. PANTOPRAZOLE [Suspect]
     Active Substance: PANTOPRAZOLE
     Indication: Abdominal discomfort
     Dosage: 40 MILLIGRAM, QD
     Route: 048
     Dates: end: 20210812
  2. PANTOPRAZOLE [Suspect]
     Active Substance: PANTOPRAZOLE
     Indication: Antacid therapy
     Dosage: 40 MILLIGRAM, QD
     Route: 048
  3. PANTOPRAZOLE [Suspect]
     Active Substance: PANTOPRAZOLE
     Dosage: 80 MILLIGRAM, QD (40 MILLIGRAM, BID)
     Route: 048
  4. PARATHYROID HORMONE [Suspect]
     Active Substance: PARATHYROID HORMONE
     Indication: Hypoparathyroidism
     Dosage: 75 MICROGRAM, QD/75 MICROGRAM 1X DAILY/START DATE:15-MAY-2018
     Route: 058
     Dates: end: 20210601
  5. PARATHYROID HORMONE [Suspect]
     Active Substance: PARATHYROID HORMONE
     Dosage: 50 MICROGRAM, 1X/DAY:QD/START:15-MAY-2018
     Route: 058
  6. PARATHYROID HORMONE [Suspect]
     Active Substance: PARATHYROID HORMONE
     Dosage: 75 MICROGRAM, QD/ START DATE:15-MAY-2018
     Route: 058
     Dates: end: 20210812
  7. PARATHYROID HORMONE [Suspect]
     Active Substance: PARATHYROID HORMONE
     Dosage: 50 MICROGRAM, 1X/DAY:QD/START:15-MAY-2018
     Route: 058
  8. PARATHYROID HORMONE [Suspect]
     Active Substance: PARATHYROID HORMONE
     Dosage: 50 MICROGRAM, 1X/DAY:QD/START:15-MAY-2018
     Route: 058
  9. PARATHYROID HORMONE [Suspect]
     Active Substance: PARATHYROID HORMONE
     Dosage: 75 MICROGRAM, QD/ START DATE: 12-AUG-2021
     Route: 058
  10. ARANESP [Concomitant]
     Active Substance: DARBEPOETIN ALFA
     Indication: Product used for unknown indication
     Dosage: 80 MICROGRAM, MONTHLY/80 MICROGRAM/1X/MONTH
  11. PREDNISOLONE [Concomitant]
     Active Substance: PREDNISOLONE
     Indication: Post procedural complication
     Dosage: 4 MILLIGRAM, QD (4 MILLIGRAM/1-0-0)
     Route: 048
  12. CALCIUM [Concomitant]
     Active Substance: CALCIUM
     Indication: Product used for unknown indication
     Dosage: UNK
  13. GABAPENTIN [Concomitant]
     Active Substance: GABAPENTIN
     Indication: Pain
     Dosage: 200 MICROGRAM, QD, 100 MICROGRAM/1-0-1
     Route: 048
  14. RENVELA [Concomitant]
     Active Substance: SEVELAMER CARBONATE
     Indication: Blood phosphorus
     Dosage: UNK/2-2-2
     Route: 048
  15. RENVELA [Concomitant]
     Active Substance: SEVELAMER CARBONATE
     Dosage: UNK UNK, QD (UNK, TID)
     Route: 048
  16. CYCLOSPORINE [Concomitant]
     Active Substance: CYCLOSPORINE
     Indication: Post procedural complication
     Dosage: 120 MILLIGRAM, QD, 60 MILLIGRAM/1-0-1
     Route: 048
  17. BENZBROMARONE [Concomitant]
     Active Substance: BENZBROMARONE
     Indication: Product used for unknown indication
     Dosage: 100 MILLIGRAM, BID/1-0-1
     Route: 048
  18. BENZBROMARONE [Concomitant]
     Active Substance: BENZBROMARONE
     Dosage: 80 MICROGRAM, 80 MICROGRAM/1X/MONTH
     Route: 048
  19. BENZBROMARONE [Concomitant]
     Active Substance: BENZBROMARONE
     Dosage: 200 MILLIGRAM, QD (100 MILLIGRAM, BID)
     Route: 048
  20. CELLCEPT [Concomitant]
     Active Substance: MYCOPHENOLATE MOFETIL
     Indication: Post procedural complication
     Dosage: 1000 MILLIGRAM, QD, 500 MILLIGRAM/1-0-1
     Route: 048

REACTIONS (19)
  - Paraplegia [Recovered/Resolved with Sequelae]
  - Muscle rupture [Recovered/Resolved with Sequelae]
  - Pain in extremity [Recovering/Resolving]
  - Comminuted fracture [Recovered/Resolved]
  - Hypocalcaemia [Recovered/Resolved]
  - Cervical vertebral fracture [Not Recovered/Not Resolved]
  - Inflammatory marker increased [Not Recovered/Not Resolved]
  - Renal disorder [Recovered/Resolved]
  - Mobility decreased [Recovered/Resolved with Sequelae]
  - Arthralgia [Recovered/Resolved]
  - Fall [Not Recovered/Not Resolved]
  - Back pain [Recovered/Resolved]
  - Renal impairment [Recovered/Resolved]
  - Optic nerve injury [Recovered/Resolved with Sequelae]
  - Blood calcium abnormal [Recovered/Resolved]
  - Gastroenteritis [Recovered/Resolved]
  - Fatigue [Recovered/Resolved]
  - Asthenia [Recovered/Resolved]
  - Product dose omission issue [Recovered/Resolved]

NARRATIVE: CASE EVENT DATE: 20200706
